FAERS Safety Report 4666545-4 (Version None)
Quarter: 2005Q2

REPORT INFORMATION
  Report Type: 
  Country: None (occurrence: None)
  Receive Date: 20050518
  Receipt Date: 20040810
  Transmission Date: 20051028
  Serious: Yes (Hospitalization)
  Sender: FDA-Public Use
  Company Number: 2004227718US

PATIENT
  Age: 22 Year
  Sex: Female
  Weight: 79.4 kg

DRUGS (2)
  1. DEPO-PROVERA [Suspect]
     Dosage: SEE IMAGE
     Dates: start: 19990501, end: 19990501
  2. DEPO-PROVERA [Suspect]
     Dosage: SEE IMAGE
     Dates: start: 20040101, end: 20040101

REACTIONS (1)
  - MENORRHAGIA [None]
